FAERS Safety Report 7047248-8 (Version None)
Quarter: 2010Q4

REPORT INFORMATION
  Report Type: 
  Country: None (occurrence: None)
  Receive Date: 20101015
  Receipt Date: 20101006
  Transmission Date: 20110411
  Serious: Yes (Hospitalization, Other)
  Sender: FDA-Public Use
  Company Number: DE-ROCHE-725717

PATIENT
  Sex: Male
  Weight: 92 kg

DRUGS (18)
  1. METHOXY POLYETHYLENE GLYCOL-EPOETIN BETA [Suspect]
     Dosage: DOSE: 150, BATCH: 112010H, GALENICAL FORM: 0463H02
     Route: 058
     Dates: start: 20091102, end: 20091222
  2. METHOXY POLYETHYLENE GLYCOL-EPOETIN BETA [Suspect]
     Dosage: DOSE: 175
     Route: 058
     Dates: start: 20091222, end: 20100222
  3. METHOXY POLYETHYLENE GLYCOL-EPOETIN BETA [Suspect]
     Dosage: DOSE: 250, BATCH: 062012, GALENICAL FORM: H6
     Route: 058
     Dates: start: 20100222, end: 20100319
  4. METHOXY POLYETHYLENE GLYCOL-EPOETIN BETA [Suspect]
     Dosage: DOSE: 300
     Route: 058
     Dates: start: 20100319, end: 20100420
  5. METHOXY POLYETHYLENE GLYCOL-EPOETIN BETA [Suspect]
     Dosage: DOS: 325
     Route: 058
     Dates: start: 20100420, end: 20100512
  6. METHOXY POLYETHYLENE GLYCOL-EPOETIN BETA [Suspect]
     Dosage: DOSE: 275
     Route: 058
     Dates: start: 20100512, end: 20100710
  7. METHOXY POLYETHYLENE GLYCOL-EPOETIN BETA [Suspect]
     Dosage: DOSE: 300
     Route: 058
     Dates: start: 20100710, end: 20100804
  8. METHOXY POLYETHYLENE GLYCOL-EPOETIN BETA [Suspect]
     Dosage: DOSE: 350, BATCH: H0532H01, H0472H02
     Route: 058
     Dates: start: 20100804, end: 20100901
  9. METHOXY POLYETHYLENE GLYCOL-EPOETIN BETA [Suspect]
     Dosage: DOSE: 400
     Route: 058
     Dates: start: 20100901
  10. DREISAVIT N [Concomitant]
     Dosage: DOSE: 1 PER DAY
     Route: 048
     Dates: start: 20090131
  11. CALCITRIOL [Concomitant]
     Route: 048
     Dates: start: 20090610
  12. CALCIUM ACETATE [Concomitant]
     Route: 048
     Dates: start: 20091021
  13. NEFROCARNIT [Concomitant]
     Route: 042
     Dates: start: 20100210
  14. BICA NORM [Concomitant]
     Dosage: DOSE: 1 TABLET
     Route: 048
     Dates: start: 20100222
  15. METOPROLOL SUCCINATE [Concomitant]
     Indication: HYPERTENSION
     Route: 048
     Dates: start: 20100503
  16. DELIX [Concomitant]
     Indication: HYPERTENSION
     Route: 048
     Dates: start: 20100512
  17. MELOXICAM [Concomitant]
     Route: 048
     Dates: start: 20100825
  18. FERRLECIT [Concomitant]
     Route: 042
     Dates: start: 20100719

REACTIONS (2)
  - HAEMOGLOBIN DECREASED [None]
  - MYOCARDITIS [None]
